FAERS Safety Report 10052424 (Version 1)
Quarter: 2014Q2

REPORT INFORMATION
  Report Type: Spontaneous
  Country: US (occurrence: None)
  Receive Date: 20140401
  Receipt Date: 20140401
  Transmission Date: 20141212
  Serious: Yes (Other)
  Sender: FDA-Public Use
  Company Number: None

PATIENT
  Age: 34 Year
  Sex: Female
  Weight: 43.09 kg

DRUGS (1)
  1. DULOXETINE [Suspect]
     Indication: ANXIETY
     Dosage: 1 PILL
     Route: 048
     Dates: start: 20140101, end: 20140331

REACTIONS (6)
  - Anxiety [None]
  - Dyspnoea [None]
  - Decreased appetite [None]
  - Headache [None]
  - Initial insomnia [None]
  - Product substitution issue [None]
